FAERS Safety Report 15996279 (Version 1)
Quarter: 2019Q1

REPORT INFORMATION
  Report Type: Spontaneous
  Country: US (occurrence: US)
  Receive Date: 20190222
  Receipt Date: 20190222
  Transmission Date: 20190418
  Serious: No
  Sender: FDA-Public Use
  Company Number: None

PATIENT
  Age: 43 Year
  Sex: Female
  Weight: 57.15 kg

DRUGS (1)
  1. CLOMID [Suspect]
     Active Substance: CLOMIPHENE CITRATE
     Indication: INFERTILITY FEMALE
     Dates: start: 20190214, end: 20190222

REACTIONS (4)
  - Photopsia [None]
  - Feeling abnormal [None]
  - Product dispensing error [None]
  - Dizziness [None]

NARRATIVE: CASE EVENT DATE: 20190222
